FAERS Safety Report 5535980-4 (Version None)
Quarter: 2007Q4

REPORT INFORMATION
  Report Type: 
  Country: None (occurrence: None)
  Receive Date: 20071206
  Receipt Date: 20071203
  Transmission Date: 20080405
  Serious: Yes (Other)
  Sender: FDA-Public Use
  Company Number: US-BAYER-200713970BCC

PATIENT
  Age: 90 Year
  Sex: Male
  Weight: 57 kg

DRUGS (1)
  1. ALEVE [Suspect]
     Indication: BACK PAIN
     Route: 048
     Dates: start: 19960101

REACTIONS (3)
  - DEATH [None]
  - POLLAKIURIA [None]
  - URINARY INCONTINENCE [None]
